FAERS Safety Report 15055216 (Version 1)
Quarter: 2018Q2

REPORT INFORMATION
  Report Type: Spontaneous
  Country: US (occurrence: US)
  Receive Date: 20180622
  Receipt Date: 20180622
  Transmission Date: 20180711
  Serious: No
  Sender: FDA-Public Use
  Company Number: US-009507513-1806USA006918

PATIENT
  Sex: Female
  Weight: 81.63 kg

DRUGS (1)
  1. NEXPLANON [Suspect]
     Active Substance: ETONOGESTREL
     Indication: MENSTRUATION IRREGULAR
     Dosage: EVERY 4 YEARS, IMPLANT RIGHT ARM
     Route: 059
     Dates: start: 20170921

REACTIONS (4)
  - Weight increased [Unknown]
  - Amenorrhoea [Unknown]
  - Hypomenorrhoea [Unknown]
  - Mood swings [Unknown]
